FAERS Safety Report 18522921 (Version 1)
Quarter: 2020Q4

REPORT INFORMATION
  Report Type: Spontaneous
  Country: US (occurrence: US)
  Receive Date: 20201119
  Receipt Date: 20201119
  Transmission Date: 20210114
  Serious: No
  Sender: FDA-Public Use
  Company Number: US-PFIZER INC-2020358635

PATIENT
  Age: 81 Year
  Sex: Female

DRUGS (2)
  1. IBRANCE [Suspect]
     Active Substance: PALBOCICLIB
     Dosage: 75 MG, CYCLIC (TAKE DAYS 1-14 OF EACH 21 DAY CYCLE)
     Route: 048
  2. IBRANCE [Suspect]
     Active Substance: PALBOCICLIB
     Dosage: 125 MG, CYCLIC (TAKE ON DAYS 1 THRU 14 OF EACH 28 DAY CYCLE)
     Route: 048

REACTIONS (1)
  - Memory impairment [Unknown]
